FAERS Safety Report 5849197-7 (Version None)
Quarter: 2008Q3

REPORT INFORMATION
  Report Type: 
  Country: None (occurrence: None)
  Receive Date: 20080818
  Receipt Date: 20080818
  Transmission Date: 20090109
  Serious: Yes (Other)
  Sender: FDA-Public Use
  Company Number: None

PATIENT
  Age: 57 Year
  Sex: Female
  Weight: 74.8435 kg

DRUGS (1)
  1. AVONEX [Suspect]
     Indication: MULTIPLE SCLEROSIS
     Dosage: AVONEX QW IM
     Route: 030
     Dates: start: 20050601

REACTIONS (4)
  - DEATH OF RELATIVE [None]
  - DYSSTASIA [None]
  - EMOTIONAL DISTRESS [None]
  - PAIN IN EXTREMITY [None]
